FAERS Safety Report 9602443 (Version 1)
Quarter: 2013Q4

REPORT INFORMATION
  Report Type: Spontaneous
  Country: FI (occurrence: FI)
  Receive Date: 20131007
  Receipt Date: 20131007
  Transmission Date: 20140711
  Serious: Yes (Other)
  Sender: FDA-Public Use
  Company Number: FI-ELI_LILLY_AND_COMPANY-FI201309008524

PATIENT
  Age: 60 Year
  Sex: Male

DRUGS (4)
  1. ZYPADHERA [Suspect]
     Dosage: UNK
     Route: 030
     Dates: start: 20130709
  2. ZYPADHERA [Suspect]
     Dosage: 405 MG, UNK
     Route: 030
     Dates: start: 20130725
  3. PRIMASPAN [Concomitant]
     Indication: ANTICOAGULANT THERAPY
  4. SIMVASTATIN [Concomitant]
     Indication: BLOOD CHOLESTEROL
     Dosage: UNK

REACTIONS (7)
  - Hypotonia [Recovered/Resolved]
  - Unresponsive to stimuli [Recovered/Resolved]
  - Staring [Recovered/Resolved]
  - Dysarthria [Recovered/Resolved]
  - Fatigue [Recovered/Resolved]
  - Loss of consciousness [Recovered/Resolved]
  - Confusional state [Recovered/Resolved]
